FAERS Safety Report 23739704 (Version 1)
Quarter: 2024Q2

REPORT INFORMATION
  Report Type: Report from Study
  Country: US (occurrence: None)
  Receive Date: 20240414
  Receipt Date: 20240414
  Transmission Date: 20240716
  Serious: Yes (Death, Other)
  Sender: FDA-Public Use
  Company Number: 2020SF57661

PATIENT
  Age: 26565 Day
  Sex: Female
  Weight: 65.8 kg

DRUGS (1)
  1. DALIRESP [Suspect]
     Active Substance: ROFLUMILAST
     Indication: Chronic obstructive pulmonary disease
     Dosage: 1 TABLET DAILY BY MOUTH
     Route: 048

REACTIONS (3)
  - Colon cancer [Fatal]
  - Cardiac arrest [Fatal]
  - Cardiac failure congestive [Not Recovered/Not Resolved]

NARRATIVE: CASE EVENT DATE: 20201112
